FAERS Safety Report 8554719-1 (Version None)
Quarter: 2012Q3

REPORT INFORMATION
  Report Type: 
  Country: None (occurrence: None)
  Receive Date: 20120731
  Receipt Date: 20120717
  Transmission Date: 20120928
  Serious: No
  Sender: FDA-Public Use
  Company Number: US-ASTRAZENECA-2012SE49769

PATIENT
  Age: 63 Year
  Sex: Female
  Weight: 52.2 kg

DRUGS (6)
  1. SYNTHROID [Concomitant]
  2. LAMICTAL [Concomitant]
  3. TRAZODONE HCL [Concomitant]
  4. PERCOCET [Concomitant]
     Indication: ANALGESIC THERAPY
  5. PREMUN [Concomitant]
  6. NEXIUM [Suspect]
     Indication: GASTRITIS
     Route: 048

REACTIONS (3)
  - ABDOMINAL PAIN [None]
  - OFF LABEL USE [None]
  - HEADACHE [None]
